FAERS Safety Report 7908420-5 (Version None)
Quarter: 2011Q4

REPORT INFORMATION
  Report Type: 
  Country: None (occurrence: None)
  Receive Date: 20111111
  Receipt Date: 20111104
  Transmission Date: 20120403
  Serious: Yes (Other)
  Sender: FDA-Public Use
  Company Number: US-CELGENEUS-163-21880-11110873

PATIENT
  Sex: Male
  Weight: 67.192 kg

DRUGS (6)
  1. REVLIMID [Suspect]
     Dosage: 15 MILLIGRAM
     Route: 048
     Dates: start: 20100401
  2. REVLIMID [Suspect]
     Indication: MULTIPLE MYELOMA
     Dosage: 25 MILLIGRAM
     Route: 048
     Dates: start: 20081001
  3. METOPROLOL [Concomitant]
     Dosage: 100MG- A.M., 50MG- P.M.
     Route: 065
  4. REVLIMID [Suspect]
     Dosage: 10MG-15MG
     Route: 048
     Dates: start: 20090601
  5. AVAPRO [Concomitant]
     Dosage: 300 MILLIGRAM
     Route: 065
  6. FELIDOPINE [Concomitant]
     Dosage: 5 MILLIGRAM
     Route: 065

REACTIONS (2)
  - SEBACEOUS CARCINOMA [None]
  - DIARRHOEA [None]
